FAERS Safety Report 14212662 (Version 1)
Quarter: 2017Q4

REPORT INFORMATION
  Report Type: Report from Study
  Country: None (occurrence: US)
  Receive Date: 20171121
  Receipt Date: 20171121
  Transmission Date: 20180321
  Serious: Yes (Other)
  Sender: FDA-Public Use
  Company Number: US-ABBVIE-17P-163-2169271-00

PATIENT
  Age: 31 Year
  Sex: Female

DRUGS (1)
  1. LUPRON DEPOT [Suspect]
     Active Substance: LEUPROLIDE ACETATE
     Indication: ENDOMETRIOSIS
     Route: 030
     Dates: start: 2007

REACTIONS (6)
  - Live birth [Unknown]
  - Exposure during pregnancy [Unknown]
  - Ovarian neoplasm [Recovered/Resolved]
  - Pain [Not Recovered/Not Resolved]
  - Ovarian cyst [Recovered/Resolved]
  - Endometriosis [Recovered/Resolved]

NARRATIVE: CASE EVENT DATE: 201707
